FAERS Safety Report 14696335 (Version 4)
Quarter: 2018Q2

REPORT INFORMATION
  Report Type: Report from Study
  Country: US (occurrence: US)
  Receive Date: 20180329
  Receipt Date: 20180616
  Transmission Date: 20180711
  Serious: Yes (Hospitalization, Other)
  Sender: FDA-Public Use
  Company Number: US-AMGEN-USASP2018040644

PATIENT
  Age: 68 Year
  Sex: Female

DRUGS (2)
  1. REPATHA [Suspect]
     Active Substance: EVOLOCUMAB
     Indication: HYPERCHOLESTEROLAEMIA
     Dosage: 420 MG, QMO
     Route: 065
     Dates: start: 20180207
  2. REPATHA [Suspect]
     Active Substance: EVOLOCUMAB
     Dosage: 140 MG,(EVERY 15 DAYS) UNK
     Route: 065

REACTIONS (18)
  - Atrial fibrillation [Unknown]
  - Back pain [Recovered/Resolved]
  - Rhinorrhoea [Unknown]
  - Mobility decreased [Unknown]
  - Arthralgia [Recovered/Resolved]
  - Injection site bruising [Unknown]
  - Atrial flutter [Unknown]
  - Oral herpes [Unknown]
  - Herpes virus infection [Recovering/Resolving]
  - Musculoskeletal pain [Recovered/Resolved]
  - Injection site pain [Unknown]
  - Pain [Unknown]
  - Weight decreased [Unknown]
  - Myalgia [Recovered/Resolved]
  - Injection site mass [Unknown]
  - Haemorrhoids [Unknown]
  - Depression [Recovering/Resolving]
  - Cough [Unknown]

NARRATIVE: CASE EVENT DATE: 2018
